FAERS Safety Report 8179524-X (Version None)
Quarter: 2012Q1

REPORT INFORMATION
  Report Type: 
  Country: None (occurrence: None)
  Receive Date: 20120229
  Receipt Date: 20120229
  Transmission Date: 20120608
  Serious: No
  Sender: FDA-Public Use
  Company Number: None

PATIENT
  Age: 70 Year
  Sex: Female
  Weight: 39.0093 kg

DRUGS (1)
  1. FLAGYL [Suspect]
     Indication: CLOSTRIDIAL INFECTION
     Dosage: 500 MG 3 TIMES DAILY MOUTH
     Route: 048
     Dates: start: 20120127, end: 20120208

REACTIONS (11)
  - NIGHT SWEATS [None]
  - PAIN IN EXTREMITY [None]
  - TREMOR [None]
  - FATIGUE [None]
  - FLATULENCE [None]
  - ARTHRALGIA [None]
  - MUSCLE SPASMS [None]
  - CONFUSIONAL STATE [None]
  - ABDOMINAL DISTENSION [None]
  - AGEUSIA [None]
  - MOVEMENT DISORDER [None]
